FAERS Safety Report 25573594 (Version 1)
Quarter: 2025Q3

REPORT INFORMATION
  Report Type: Spontaneous
  Country: US (occurrence: US)
  Receive Date: 20250717
  Receipt Date: 20250717
  Transmission Date: 20251021
  Serious: No
  Sender: MERCK SHARP & DOHME LLC
  Company Number: US-009507513-2309238

PATIENT
  Sex: Female

DRUGS (15)
  1. KEYTRUDA [Suspect]
     Active Substance: PEMBROLIZUMAB
     Indication: Malignant melanoma
     Dosage: EVERY THREE WEEKS
     Dates: start: 202502
  2. KEYTRUDA [Suspect]
     Active Substance: PEMBROLIZUMAB
     Indication: Malignant melanoma
     Dosage: EVERY THREE WEEKS
     Dates: start: 20250709
  3. OMEPRAZOLE [Concomitant]
     Active Substance: OMEPRAZOLE
  4. VITAMIN B12 [Concomitant]
     Active Substance: CYANOCOBALAMIN
  5. ASPIRIN [Concomitant]
     Active Substance: ASPIRIN
  6. WELLBUTRIN [Concomitant]
     Active Substance: BUPROPION HYDROCHLORIDE
  7. ESTRADIOL [Concomitant]
     Active Substance: ESTRADIOL
  8. FLONASE [Concomitant]
     Active Substance: FLUTICASONE PROPIONATE
  9. HYDROCHLOROTHIAZIDE [Concomitant]
     Active Substance: HYDROCHLOROTHIAZIDE
  10. Hydroxycoriquin [Concomitant]
  11. IRBESARTAN [Concomitant]
     Active Substance: IRBESARTAN
  12. MELOXICAM [Concomitant]
     Active Substance: MELOXICAM
  13. PROGESTERONE [Concomitant]
     Active Substance: PROGESTERONE
  14. TRAMADOL [Concomitant]
     Active Substance: TRAMADOL
     Indication: Pain
  15. VITAMIN D3 [Concomitant]
     Active Substance: CHOLECALCIFEROL

REACTIONS (4)
  - Oropharyngeal pain [Not Recovered/Not Resolved]
  - Pharyngeal swelling [Not Recovered/Not Resolved]
  - Vulvovaginal burning sensation [Recovering/Resolving]
  - Vulvovaginal swelling [Recovering/Resolving]

NARRATIVE: CASE EVENT DATE: 20250101
